FAERS Safety Report 9886592 (Version 2)
Quarter: 2014Q1

REPORT INFORMATION
  Report Type: Spontaneous
  Country: US (occurrence: US)
  Receive Date: 20140210
  Receipt Date: 20140225
  Transmission Date: 20141002
  Serious: Yes (Death, Hospitalization, Other)
  Sender: FDA-Public Use
  Company Number: US-B.I. PHARMACEUTICALS,INC./RIDGEFIELD-2014-BI-05979BP

PATIENT
  Age: 73 Year
  Sex: Female

DRUGS (1)
  1. PRADAXA [Suspect]
     Indication: ATRIAL FIBRILLATION
     Dosage: ONE CAPSULE, ONLY ONE DOSE
     Route: 048
     Dates: start: 20140201, end: 20140202

REACTIONS (6)
  - Intestinal ischaemia [Fatal]
  - Haemorrhage [Unknown]
  - Abdominal wall haematoma [Unknown]
  - Hypotension [Unknown]
  - Anaemia [Unknown]
  - Acidosis [Unknown]
